FAERS Safety Report 9751138 (Version 3)
Quarter: 2014Q1

REPORT INFORMATION
  Report Type: Report from Study
  Country: US (occurrence: US)
  Receive Date: 20131212
  Receipt Date: 20140129
  Transmission Date: 20141002
  Serious: Yes (Death, Hospitalization)
  Sender: FDA-Public Use
  Company Number: US-MPIJNJ-2013MPI001219

PATIENT
  Age: 64 Year
  Sex: Female
  Weight: 53.93 kg

DRUGS (6)
  1. VELCADE [Suspect]
     Indication: LYMPHOMA
     Dosage: 1.6 MG/M2, OVER 3-5 SECONDS, ON DAYS 1, 8, 15 AND 22 OF EACH 35-DAY CYCLE, (MAX. 6 CYCLES)
     Route: 042
     Dates: start: 20130611
  2. OFATUMUMAB [Suspect]
     Indication: LYMPHOMA
     Dosage: 300 MG, ON DAY 1 OF CYCLE 1
     Route: 042
     Dates: start: 20130611, end: 20130611
  3. OFATUMUMAB [Suspect]
     Dosage: 1000 MG, ON DAY 1 OF CYCLES 2-6 (35-DAY CYCLE)
     Route: 042
     Dates: end: 20131030
  4. BENDAMUSTINE [Suspect]
     Indication: LYMPHOMA
     Dosage: 90 MG/M2, OVER 30-60 MINUTES ON DAYS 1 AND 2
     Route: 042
     Dates: start: 20130611, end: 20131031
  5. FLUORINE F-18 [Concomitant]
     Indication: LYMPHOMA
     Dosage: 15.1 MCI, UNK
     Dates: start: 20130416, end: 20130416
  6. FLUORINE F-18 [Concomitant]
     Dosage: 14.6 MCI, UNK
     Dates: start: 20130820, end: 20130820

REACTIONS (4)
  - Diarrhoea [Unknown]
  - Pneumatosis intestinalis [Fatal]
  - Nausea [Not Recovered/Not Resolved]
  - Vomiting [Not Recovered/Not Resolved]
